FAERS Safety Report 9649017 (Version 2)
Quarter: 2013Q4

REPORT INFORMATION
  Report Type: Report from Study
  Country: CA (occurrence: CA)
  Receive Date: 20131028
  Receipt Date: 20131028
  Transmission Date: 20140711
  Serious: Yes (Hospitalization, Other)
  Sender: FDA-Public Use
  Company Number: CA-ASTELLAS-2013US000476

PATIENT
  Age: 72 Year
  Sex: Male
  Weight: 69 kg

DRUGS (11)
  1. ENZALUTAMIDE [Suspect]
     Indication: PROSTATE CANCER
     Dosage: 160 MG, UID/QD
     Route: 048
     Dates: start: 20121213, end: 20130109
  2. FENTANYL [Concomitant]
     Indication: ARTHRALGIA
     Dosage: 200 UG/HR, Q3D
     Route: 061
     Dates: start: 20121016
  3. HYDROMORPHONE [Concomitant]
     Indication: ARTHRALGIA
     Dosage: 4 MG, PRN
     Route: 048
     Dates: start: 201203
  4. PREDNISONE [Concomitant]
     Indication: PROSTATE CANCER
     Dosage: 20 MG, UID/QD
     Route: 048
     Dates: start: 20121024
  5. SIMVASTATIN [Concomitant]
     Indication: HYPERCHOLESTEROLAEMIA
     Dosage: 20 MG, UID/QD
     Route: 048
     Dates: start: 1985
  6. CALCIUM [Concomitant]
     Indication: ROUTINE HEALTH MAINTENANCE
     Dosage: 650 MG, UID/QD
     Route: 048
     Dates: start: 20121115
  7. VITAMIN D                          /00107901/ [Concomitant]
     Indication: ROUTINE HEALTH MAINTENANCE
     Dosage: 1000 IU, UID/QD
     Route: 048
     Dates: start: 20121115
  8. FLOVENT [Concomitant]
     Indication: ASTHMA
     Dosage: 2 PUFFS, UID/QD
     Route: 055
     Dates: start: 1995
  9. ALEVE [Concomitant]
     Indication: ARTHRALGIA
     Dosage: 220 MG, BID
     Route: 048
     Dates: start: 20121108
  10. DEGARELIX [Concomitant]
     Indication: PROSTATE CANCER
     Dosage: 240 MG, TOTAL DOSE
     Route: 058
     Dates: start: 20121210, end: 20121210
  11. LACTULOSE [Concomitant]
     Indication: CONSTIPATION
     Dosage: 30 ML, PRN
     Route: 048
     Dates: start: 201210

REACTIONS (2)
  - Convulsion [Recovered/Resolved]
  - Visual impairment [Unknown]
